FAERS Safety Report 7788707-X (Version None)
Quarter: 2011Q3

REPORT INFORMATION
  Report Type: 
  Country: None (occurrence: None)
  Receive Date: 20110928
  Receipt Date: 20110912
  Transmission Date: 20111222
  Serious: Yes (Life-Threatening, Hospitalization)
  Sender: FDA-Public Use
  Company Number: FK201101967

PATIENT
  Age: 5 Month
  Sex: Female

DRUGS (6)
  1. SEVOFLURANE [Suspect]
  2. PROPOFOL [Suspect]
     Indication: INDUCTION AND MAINTENANCE OF ANAESTHESIA
     Dosage: INTRAVENOUS (NOT OTHERWISE SPECIFIED),
     Route: 042
     Dates: start: 20110812, end: 20110812
  3. FUROSEMIDE [Concomitant]
  4. CAPTOPRIL [Suspect]
  5. NEXIUM [Concomitant]
  6. ATARAX [Suspect]

REACTIONS (8)
  - DIARRHOEA [None]
  - HEPATIC FAILURE [None]
  - GASTROINTESTINAL HAEMORRHAGE [None]
  - ACUTE PULMONARY OEDEMA [None]
  - DEHYDRATION [None]
  - STAPHYLOCOCCUS TEST POSITIVE [None]
  - TRANSFUSION RELATED COMPLICATION [None]
  - PYREXIA [None]
